FAERS Safety Report 11676602 (Version 3)
Quarter: 2015Q4

REPORT INFORMATION
  Report Type: Spontaneous
  Country: US (occurrence: US)
  Receive Date: 20151027
  Receipt Date: 20151110
  Transmission Date: 20160304
  Serious: No
  Sender: FDA-Public Use
  Company Number: US-ELI_LILLY_AND_COMPANY-US201005003678

PATIENT
  Sex: Female

DRUGS (2)
  1. FORTEO [Suspect]
     Active Substance: TERIPARATIDE
     Indication: OSTEOPOROSIS
     Dosage: 20 UG, DAILY (1/D)
     Route: 065
     Dates: start: 201001, end: 2010
  2. FORTEO [Suspect]
     Active Substance: TERIPARATIDE
     Dosage: 20 UG, DAILY (1/D)
     Route: 065

REACTIONS (13)
  - Contusion [Recovered/Resolved]
  - Cough [Unknown]
  - Gait disturbance [Recovering/Resolving]
  - Injection site bruising [Unknown]
  - Spontaneous haematoma [Recovered/Resolved]
  - Sneezing [Unknown]
  - Fatigue [Unknown]
  - Joint swelling [Recovered/Resolved]
  - Arthropathy [Unknown]
  - Blood pressure decreased [Unknown]
  - Speech disorder [Unknown]
  - Malaise [Unknown]
  - Arthralgia [Not Recovered/Not Resolved]
